FAERS Safety Report 22353759 (Version 2)
Quarter: 2023Q2

REPORT INFORMATION
  Report Type: Spontaneous
  Country: US (occurrence: US)
  Receive Date: 20230523
  Receipt Date: 20230615
  Transmission Date: 20230721
  Serious: Yes (Other)
  Sender: FDA-Public Use
  Company Number: US-BRISTOL-MYERS SQUIBB COMPANY-2023-071103

PATIENT
  Age: 65 Year
  Sex: Male
  Weight: 72.574 kg

DRUGS (1)
  1. ELIQUIS [Suspect]
     Active Substance: APIXABAN
     Indication: Cerebrovascular accident prophylaxis
     Route: 048
     Dates: start: 20230515

REACTIONS (6)
  - Faeces discoloured [Unknown]
  - Product dose omission issue [Unknown]
  - Haematochezia [Unknown]
  - Anxiety [Unknown]
  - Muscle tightness [Unknown]
  - Feeling abnormal [Unknown]

NARRATIVE: CASE EVENT DATE: 20230501
